FAERS Safety Report 4539781-5 (Version None)
Quarter: 2004Q4

REPORT INFORMATION
  Report Type: 
  Country: None (occurrence: None)
  Receive Date: 20041223
  Receipt Date: 20041214
  Transmission Date: 20050328
  Serious: Yes (Hospitalization)
  Sender: FDA-Public Use
  Company Number: TR-2004-036724

PATIENT
  Age: 49 Year
  Sex: Female

DRUGS (1)
  1. SOTALOL HCL [Suspect]
     Dosage: 80 MG, 2X/DAY, ORAL
     Route: 048

REACTIONS (7)
  - BLOOD MAGNESIUM INCREASED [None]
  - DEPRESSED LEVEL OF CONSCIOUSNESS [None]
  - HYPOKALAEMIA [None]
  - RENAL TUBULAR NECROSIS [None]
  - THERAPY NON-RESPONDER [None]
  - TORSADE DE POINTES [None]
  - VENTRICULAR FIBRILLATION [None]
